FAERS Safety Report 10589638 (Version 1)
Quarter: 2014Q4

REPORT INFORMATION
  Report Type: Spontaneous
  Country: GR (occurrence: GR)
  Receive Date: 20141118
  Receipt Date: 20141118
  Transmission Date: 20150529
  Serious: Yes (Death, Hospitalization)
  Sender: FDA-Public Use
  Company Number: PHHY2014GR145292

PATIENT
  Age: 76 Year
  Sex: Male

DRUGS (3)
  1. CO-DIOVAN [Concomitant]
     Active Substance: HYDROCHLOROTHIAZIDE\VALSARTAN
     Indication: PRODUCT USED FOR UNKNOWN INDICATION
     Route: 065
  2. DILATREND [Concomitant]
     Active Substance: CARVEDILOL
     Indication: PRODUCT USED FOR UNKNOWN INDICATION
     Route: 065
  3. TASIGNA [Suspect]
     Active Substance: NILOTINIB
     Indication: CHRONIC MYELOID LEUKAEMIA
     Dosage: 200 MG, 2X2 DAILY
     Route: 048
     Dates: start: 200909

REACTIONS (9)
  - Asthenia [Fatal]
  - Cholecystitis acute [Recovered/Resolved]
  - Haemoglobin decreased [Fatal]
  - Cerebrovascular accident [Fatal]
  - Decreased appetite [Fatal]
  - Haematocrit decreased [Recovered/Resolved]
  - Red blood cell sedimentation rate increased [Fatal]
  - Hemiparesis [Fatal]
  - Weight decreased [Fatal]

NARRATIVE: CASE EVENT DATE: 201405
